FAERS Safety Report 8795666 (Version 1)
Quarter: 2012Q4

REPORT INFORMATION
  Report Type: 
  Country: DK (occurrence: DK)
  Receive Date: 20120919
  Receipt Date: 20120919
  Transmission Date: 20130627
  Serious: Yes (Life-Threatening, Hospitalization, Other)
  Sender: FDA-Public Use
  Company Number: DK-ALLERGAN-1211777US

PATIENT
  Age: 34 Year
  Sex: Female
  Weight: 65.5 kg

DRUGS (10)
  1. UNSPECIFIED INGREDIENT [Suspect]
     Indication: DRUG USE FOR UNKNOWN INDICATION
     Dosage: UNK UNK, unknown
     Route: 065
  2. CYTARABINE [Suspect]
     Indication: DRUG USE FOR UNKNOWN INDICATION
     Dosage: UNK UNK, unknown
     Route: 065
  3. ETOPOSIDE [Suspect]
     Indication: DRUG USE FOR UNKNOWN INDICATION
     Dosage: UNK UNK, unknown
     Route: 065
  4. ONDANSETRON [Interacting]
     Indication: DRUG USE FOR UNKNOWN INDICATION
     Dosage: UNK UNK, unknown
     Route: 065
     Dates: start: 20080122, end: 20080125
  5. PANTOLOC [Suspect]
     Indication: DRUG USE FOR UNKNOWN INDICATION
     Dosage: UNK UNK, unknown
     Route: 065
     Dates: start: 20080122
  6. NOXAFIL [Interacting]
     Indication: HEPATOSPLENIC CANDIDIASIS
     Dosage: 40 mg/ml
     Route: 048
     Dates: start: 20071020, end: 20080125
  7. VOGALENE [Suspect]
     Indication: DRUG USE FOR UNKNOWN INDICATION
     Dosage: UNK, unknown
     Route: 065
  8. KALEORID [Suspect]
     Indication: DRUG USE FOR UNKNOWN INDICATION
     Dosage: 750 mg, unknown
     Route: 048
  9. ACICLOVIR [Suspect]
     Indication: DRUG USE FOR UNKNOWN INDICATION
     Dosage: UNK UNK, unknown
     Route: 065
  10. ALLOPURINOL [Suspect]
     Indication: DRUG USE FOR UNKNOWN INDICATION
     Dosage: UNK UNK, unknown
     Route: 065

REACTIONS (8)
  - Atrioventricular block second degree [Recovered/Resolved]
  - Bradycardia [Recovered/Resolved]
  - Drug interaction [Recovered/Resolved]
  - Nodal arrhythmia [Recovered/Resolved]
  - Sinoatrial block [Recovered/Resolved]
  - Sinus bradycardia [Recovered/Resolved]
  - Sinus tachycardia [Recovered/Resolved]
  - Bradyarrhythmia [Recovered/Resolved]
